FAERS Safety Report 13497990 (Version 5)
Quarter: 2017Q3

REPORT INFORMATION
  Report Type: Report from Study
  Country: AU (occurrence: AU)
  Receive Date: 20170428
  Receipt Date: 20170810
  Transmission Date: 20171127
  Serious: Yes (Hospitalization)
  Sender: FDA-Public Use
  Company Number: AU-IPSEN BIOPHARMACEUTICALS, INC.-2017-03358

PATIENT
  Age: 50 Year
  Sex: Female

DRUGS (1)
  1. SOMATULINE AUTOGEL 120MG [Suspect]
     Active Substance: LANREOTIDE ACETATE
     Indication: NEUROENDOCRINE TUMOUR
     Dosage: 120 MG
     Route: 058
     Dates: end: 201707

REACTIONS (5)
  - Cholelithiasis [Unknown]
  - Pain [Recovering/Resolving]
  - Hepatic enzyme increased [Recovered/Resolved]
  - Benign pancreatic neoplasm [Unknown]
  - Umbilical hernia repair [Recovering/Resolving]

NARRATIVE: CASE EVENT DATE: 201704
